FAERS Safety Report 15153857 (Version 1)
Quarter: 2018Q3

REPORT INFORMATION
  Report Type: Spontaneous
  Country: US (occurrence: US)
  Receive Date: 20180717
  Receipt Date: 20180717
  Transmission Date: 20181010
  Serious: No
  Sender: FDA-Public Use
  Company Number: US-TEVA-2018-US-926641

PATIENT

DRUGS (1)
  1. LORAZEPAM. [Suspect]
     Active Substance: LORAZEPAM

REACTIONS (3)
  - Drug ineffective [Unknown]
  - Product taste abnormal [Unknown]
  - Wrong technique in product usage process [Unknown]
